FAERS Safety Report 8452840-X (Version None)
Quarter: 2012Q2

REPORT INFORMATION
  Report Type: 
  Country: None (occurrence: None)
  Receive Date: 20120620
  Receipt Date: 20120430
  Transmission Date: 20120825
  Serious: No
  Sender: FDA-Public Use
  Company Number: US-VERTEX PHARMACEUTICALS INC.-AE-2012-006210

PATIENT
  Sex: Male
  Weight: 93.07 kg

DRUGS (7)
  1. PEGASYS [Concomitant]
     Indication: HEPATITIS C
     Route: 058
     Dates: start: 20120425
  2. INCIVEK [Suspect]
     Indication: HEPATITIS C
     Route: 048
     Dates: start: 20120425
  3. TOVIAZ [Concomitant]
     Route: 048
  4. CENTRUM MULTIVITAMIN [Concomitant]
     Route: 048
  5. RIBAVIRIN [Concomitant]
     Indication: HEPATITIS C
     Route: 048
     Dates: start: 20120425
  6. ALIGN [Concomitant]
     Route: 048
  7. ACETAMINOPHEN [Concomitant]
     Indication: DISCOMFORT
     Route: 048

REACTIONS (2)
  - FATIGUE [None]
  - CHILLS [None]
